FAERS Safety Report 19855646 (Version 4)
Quarter: 2022Q4

REPORT INFORMATION
  Report Type: Report from Study
  Country: US (occurrence: US)
  Receive Date: 20210920
  Receipt Date: 20221128
  Transmission Date: 20230113
  Serious: Yes (Other)
  Sender: FDA-Public Use
  Company Number: US-TAKEDA-2019TUS067777

PATIENT
  Sex: Female

DRUGS (1)
  1. VEDOLIZUMAB [Suspect]
     Active Substance: VEDOLIZUMAB
     Indication: Colitis ulcerative
     Dosage: 300 MILLIGRAM, Q4WEEKS
     Route: 042

REACTIONS (7)
  - Rectal haemorrhage [Unknown]
  - Hypoacusis [Unknown]
  - Malaise [Unknown]
  - Peripheral swelling [Unknown]
  - Memory impairment [Unknown]
  - Dyspnoea [Unknown]
  - Off label use [Unknown]
